FAERS Safety Report 16555435 (Version 1)
Quarter: 2019Q3

REPORT INFORMATION
  Report Type: Other
  Country: AU (occurrence: AU)
  Receive Date: 20190710
  Receipt Date: 20190710
  Transmission Date: 20191004
  Serious: Yes (Other)
  Sender: FDA-Public Use
  Company Number: AU-AGG-11-2018-1011

PATIENT

DRUGS (2)
  1. AGGRASTAT [Suspect]
     Active Substance: TIROFIBAN HYDROCHLORIDE
     Indication: ANTIPLATELET THERAPY
     Dosage: 0.1-0.4 MCG/KG/MIN
  2. UNFRACTIONATED HEPARIN (UFH) [Concomitant]

REACTIONS (1)
  - Embolism [Unknown]
